FAERS Safety Report 24936400 (Version 1)
Quarter: 2025Q1

REPORT INFORMATION
  Report Type: Spontaneous
  Country: US (occurrence: US)
  Receive Date: 20250206
  Receipt Date: 20250206
  Transmission Date: 20250409
  Serious: Yes (Other)
  Sender: TEVA
  Company Number: US-TEVA-VS-3291847

PATIENT
  Age: 56 Year

DRUGS (1)
  1. AUSTEDO XR [Suspect]
     Active Substance: DEUTETRABENAZINE
     Indication: Huntington^s disease
     Route: 048

REACTIONS (2)
  - Huntington^s disease [Unknown]
  - Drug ineffective [Unknown]
